FAERS Safety Report 23723939 (Version 2)
Quarter: 2024Q3

REPORT INFORMATION
  Report Type: Spontaneous
  Country: US (occurrence: US)
  Receive Date: 20240409
  Receipt Date: 20240924
  Transmission Date: 20241017
  Serious: No
  Sender: ELI LILLY AND CO
  Company Number: US-ELI_LILLY_AND_COMPANY-US202404000730

PATIENT
  Sex: Female

DRUGS (6)
  1. VERZENIO [Suspect]
     Active Substance: ABEMACICLIB
     Indication: Breast cancer
     Dosage: UNK UNK, UNKNOWN
     Route: 065
     Dates: start: 2021
  2. VERZENIO [Suspect]
     Active Substance: ABEMACICLIB
     Indication: Small cell lung cancer
  3. IBRANCE [Suspect]
     Active Substance: PALBOCICLIB
     Indication: Breast cancer
     Dosage: 75 MG, OTHER (DAILY WITH FOOD ON DAYS 1 THROUGH 21, FOLLOWED BY A 7 DAY REST)
     Route: 048
     Dates: start: 20240916
  4. IBRANCE [Suspect]
     Active Substance: PALBOCICLIB
     Indication: Small cell lung cancer
  5. ALPRAZOLAM [Concomitant]
     Active Substance: ALPRAZOLAM
     Indication: Hypertension
     Dosage: 0.125 MG, UNKNOWN
     Route: 065
     Dates: start: 1984
  6. OMEPRAZOLE [Concomitant]
     Active Substance: OMEPRAZOLE
     Indication: Product used for unknown indication

REACTIONS (1)
  - Pharyngeal injury [Not Recovered/Not Resolved]
